FAERS Safety Report 4505327-0 (Version None)
Quarter: 2004Q4

REPORT INFORMATION
  Report Type: 
  Country: None (occurrence: None)
  Receive Date: 20041015
  Receipt Date: 20040517
  Transmission Date: 20050328
  Serious: Yes (Other)
  Sender: FDA-Public Use
  Company Number: 2004026236

PATIENT
  Age: 71 Year
  Sex: Female

DRUGS (7)
  1. NEURONTIN [Suspect]
     Indication: PAIN
     Dosage: 300 MG (100 MG, 3 IN 1 D), ORAL
     Route: 048
     Dates: start: 20040401
  2. CELECOXIB (CELECOXIB) [Suspect]
     Indication: PAIN
     Dosage: ORAL
     Route: 048
  3. ESOMEPRAZOLE (ESOMEPRAZOLE) [Concomitant]
  4. HEMOCYTE-F ELIXIR (CYANOCOBALAMIN, FOLIC ACID, POLYSACCHARIDE-IRON COM [Concomitant]
  5. PARAXETINE HYDROCHLORIDE (PAROXETINE HYDROCHLORIDE) [Concomitant]
  6. CO-DIOVAN (HYDROCHLOROTHIAZIDE, VASLARTAN) [Concomitant]
  7. ... [Concomitant]

REACTIONS (6)
  - ANOREXIA [None]
  - BACK PAIN [None]
  - DIFFICULTY IN WALKING [None]
  - PAIN IN EXTREMITY [None]
  - RECTAL HAEMORRHAGE [None]
  - WEIGHT INCREASED [None]
